FAERS Safety Report 7278162-0 (Version None)
Quarter: 2011Q1

REPORT INFORMATION
  Report Type: 
  Country: None (occurrence: None)
  Receive Date: 20110207
  Receipt Date: 20110202
  Transmission Date: 20110831
  Serious: Yes (Death)
  Sender: FDA-Public Use
  Company Number: A0911444A

PATIENT
  Age: 82 Year
  Sex: Male

DRUGS (3)
  1. PRILOSEC [Concomitant]
  2. ADVAIR [Suspect]
     Indication: CHRONIC OBSTRUCTIVE PULMONARY DISEASE
     Dosage: 1PUFF TWICE PER DAY
     Route: 055
  3. VENTOLIN [Suspect]
     Indication: CHRONIC OBSTRUCTIVE PULMONARY DISEASE
     Route: 055

REACTIONS (3)
  - HEAD INJURY [None]
  - ROAD TRAFFIC ACCIDENT [None]
  - AORTIC ANEURYSM [None]
